FAERS Safety Report 7739192-5 (Version None)
Quarter: 2011Q3

REPORT INFORMATION
  Report Type: 
  Country: None (occurrence: None)
  Receive Date: 20110909
  Receipt Date: 20110826
  Transmission Date: 20111222
  Serious: Yes (Other)
  Sender: FDA-Public Use
  Company Number: JP-JNJFOC-20110803818

PATIENT
  Sex: Male
  Weight: 149 kg

DRUGS (33)
  1. FENTANYL CITRATE [Suspect]
     Indication: METASTASIS
     Route: 041
     Dates: start: 20110414, end: 20110415
  2. FENTANYL CITRATE [Suspect]
     Indication: LEUKAEMIA
     Route: 041
     Dates: start: 20110523, end: 20110604
  3. FENTANYL CITRATE [Suspect]
     Route: 041
     Dates: start: 20110515, end: 20110521
  4. FENTANYL CITRATE [Suspect]
     Route: 062
     Dates: start: 20110609, end: 20110609
  5. FENTANYL CITRATE [Suspect]
     Route: 041
     Dates: start: 20110522, end: 20110522
  6. FENTANYL CITRATE [Suspect]
     Route: 062
     Dates: start: 20110522, end: 20110522
  7. FENTANYL CITRATE [Suspect]
     Route: 041
     Dates: start: 20110515, end: 20110521
  8. FENTANYL CITRATE [Suspect]
     Route: 041
     Dates: start: 20110506, end: 20110510
  9. DUROTEP [Suspect]
     Indication: METASTASIS
     Route: 062
     Dates: start: 20110416, end: 20110505
  10. FENTANYL CITRATE [Suspect]
     Route: 062
     Dates: start: 20110523, end: 20110526
  11. FENTANYL CITRATE [Suspect]
     Route: 041
     Dates: start: 20110522, end: 20110522
  12. FENTANYL CITRATE [Suspect]
     Route: 041
     Dates: start: 20110511, end: 20110514
  13. FENTANYL CITRATE [Suspect]
     Route: 062
     Dates: start: 20110522, end: 20110522
  14. FENTANYL CITRATE [Suspect]
     Route: 062
     Dates: start: 20110609, end: 20110609
  15. FENTANYL CITRATE [Suspect]
     Route: 041
     Dates: start: 20110406, end: 20110413
  16. FENTANYL CITRATE [Suspect]
     Route: 041
     Dates: start: 20110511, end: 20110514
  17. FENTANYL CITRATE [Suspect]
     Route: 041
     Dates: start: 20110506, end: 20110510
  18. DUROTEP [Suspect]
     Indication: LEUKAEMIA
     Route: 062
     Dates: start: 20110416, end: 20110505
  19. FENTANYL CITRATE [Suspect]
     Route: 062
     Dates: start: 20110608, end: 20110608
  20. FENTANYL CITRATE [Suspect]
     Route: 041
     Dates: start: 20110522, end: 20110522
  21. FENTANYL CITRATE [Suspect]
     Route: 041
     Dates: start: 20110511, end: 20110514
  22. FENTANYL CITRATE [Suspect]
     Route: 041
     Dates: start: 20110523, end: 20110604
  23. FENTANYL CITRATE [Suspect]
     Route: 041
     Dates: start: 20110414, end: 20110415
  24. FENTANYL CITRATE [Suspect]
     Route: 041
     Dates: start: 20110406, end: 20110413
  25. FENTANYL CITRATE [Suspect]
     Route: 041
     Dates: start: 20110506, end: 20110510
  26. FENTANYL CITRATE [Suspect]
     Route: 041
     Dates: start: 20110515, end: 20110521
  27. FENTANYL CITRATE [Suspect]
     Indication: CANCER PAIN
     Route: 041
     Dates: start: 20110523, end: 20110604
  28. FENTANYL CITRATE [Suspect]
     Route: 041
     Dates: start: 20110414, end: 20110415
  29. FENTANYL CITRATE [Suspect]
     Route: 062
     Dates: start: 20110608, end: 20110608
  30. FENTANYL CITRATE [Suspect]
     Route: 062
     Dates: start: 20110527, end: 20110607
  31. FENTANYL CITRATE [Suspect]
     Route: 062
     Dates: start: 20110523, end: 20110526
  32. FENTANYL CITRATE [Suspect]
     Route: 041
     Dates: start: 20110406, end: 20110413
  33. FENTANYL CITRATE [Suspect]
     Route: 062
     Dates: start: 20110527, end: 20110607

REACTIONS (2)
  - DRUG DEPENDENCE [None]
  - WITHDRAWAL SYNDROME [None]
